FAERS Safety Report 10383054 (Version 4)
Quarter: 2019Q1

REPORT INFORMATION
  Report Type: Report from Study
  Country: US (occurrence: US)
  Receive Date: 20140813
  Receipt Date: 20190110
  Transmission Date: 20190417
  Serious: No
  Sender: FDA-Public Use
  Company Number: US-SA-2014SA099874

PATIENT
  Age: 64 Year
  Sex: Male

DRUGS (1)
  1. AGALSIDASE BETA [Suspect]
     Active Substance: AGALSIDASE BETA
     Indication: FABRY^S DISEASE
     Dosage: 80.00, Q2
     Route: 041
     Dates: start: 20121210

REACTIONS (4)
  - Chills [Unknown]
  - Nausea [Unknown]
  - Cardiomegaly [Recovering/Resolving]
  - Echocardiogram abnormal [Recovering/Resolving]

NARRATIVE: CASE EVENT DATE: 20140723
